FAERS Safety Report 9171551 (Version 2)
Quarter: 2013Q2

REPORT INFORMATION
  Report Type: Spontaneous
  Country: US (occurrence: US)
  Receive Date: 20130319
  Receipt Date: 20130520
  Transmission Date: 20140414
  Serious: Yes (Death, Hospitalization)
  Sender: FDA-Public Use
  Company Number: US-GLAXOSMITHKLINE-A1016256A

PATIENT
  Age: 56 Year
  Sex: Male

DRUGS (1)
  1. AVANDIA [Suspect]
     Indication: DIABETES MELLITUS
     Dosage: 4MG TWICE PER DAY
     Route: 048
     Dates: start: 200004, end: 200401

REACTIONS (4)
  - Ventricular fibrillation [Fatal]
  - Cardiac failure congestive [Unknown]
  - Ventricular arrhythmia [Unknown]
  - Ischaemic cardiomyopathy [Fatal]
